FAERS Safety Report 4898167-4 (Version None)
Quarter: 2006Q1

REPORT INFORMATION
  Report Type: 
  Country: None (occurrence: None)
  Receive Date: 20060127
  Receipt Date: 20060117
  Transmission Date: 20060701
  Serious: Yes (Hospitalization)
  Sender: FDA-Public Use
  Company Number: SU-2006-004517

PATIENT
  Age: 68 Year
  Sex: Female
  Weight: 65.318 kg

DRUGS (5)
  1. WELCHOL [Suspect]
     Indication: BLOOD CHOLESTEROL
     Dosage: 1250 MG BID PO
     Route: 048
     Dates: start: 20040101
  2. LOTREL [Concomitant]
  3. SECTRAL [Concomitant]
  4. LOPID [Concomitant]
  5. ASPIRIN [Concomitant]

REACTIONS (2)
  - INTESTINAL OBSTRUCTION [None]
  - PAIN [None]
